FAERS Safety Report 10262335 (Version 1)
Quarter: 2014Q2

REPORT INFORMATION
  Report Type: Spontaneous
  Country: US (occurrence: US)
  Receive Date: 20140626
  Receipt Date: 20140626
  Transmission Date: 20141212
  Serious: Yes (Other)
  Sender: FDA-Public Use
  Company Number: US-B.I. PHARMACEUTICALS,INC./RIDGEFIELD-2014-BI-28382BP

PATIENT
  Sex: Female
  Weight: 27.66 kg

DRUGS (11)
  1. ATROVENT INHALATION SOLUTION [Suspect]
     Indication: CHRONIC OBSTRUCTIVE PULMONARY DISEASE
     Dosage: 68 MCG
     Route: 055
     Dates: start: 2004
  2. VERAPAMIL [Concomitant]
     Indication: HYPERTENSION
     Dosage: 360 MG
     Route: 048
  3. VERAPAMIL [Concomitant]
     Dosage: 1/2 TABLET IN THE EVENING
     Route: 048
  4. LIPITOR [Concomitant]
     Indication: BLOOD CHOLESTEROL INCREASED
     Route: 048
  5. TOPIRAMATE [Concomitant]
     Indication: SLEEP DISORDER
     Dosage: 100 MG
     Route: 048
     Dates: start: 2013
  6. AMBIEN [Concomitant]
     Indication: SLEEP DISORDER
     Dosage: 10 MG
     Route: 048
  7. CLONAZEPAM [Concomitant]
     Indication: ANXIETY
     Dosage: 2 MG
     Route: 048
  8. PRESTIQUE [Concomitant]
     Dosage: 100 MG
     Route: 048
  9. OMEPRAZOLE [Concomitant]
     Indication: ABDOMINAL DISCOMFORT
     Dosage: 20 MG
     Route: 048
  10. MUCINEX [Concomitant]
     Route: 048
  11. LEVALBUTEROL [Concomitant]
     Indication: CHRONIC OBSTRUCTIVE PULMONARY DISEASE
     Dosage: 5 MG
     Route: 055

REACTIONS (2)
  - Lung neoplasm malignant [Not Recovered/Not Resolved]
  - Overdose [Unknown]
